FAERS Safety Report 7722564-2 (Version None)
Quarter: 2011Q3

REPORT INFORMATION
  Report Type: 
  Country: None (occurrence: None)
  Receive Date: 20110831
  Receipt Date: 20110823
  Transmission Date: 20111222
  Serious: Yes (Hospitalization)
  Sender: FDA-Public Use
  Company Number: US-ABBOTT-11P-163-0848788-00

PATIENT
  Age: 46 Year
  Sex: Female
  Weight: 97.61 kg

DRUGS (2)
  1. DEPAKOTE ER [Suspect]
  2. DEPAKOTE ER [Suspect]
     Indication: BIPOLAR DISORDER
     Dosage: DAILY DOSE: 1500MG

REACTIONS (4)
  - TOXICITY TO VARIOUS AGENTS [None]
  - ATAXIA [None]
  - FATIGUE [None]
  - CONFUSIONAL STATE [None]
